FAERS Safety Report 20509030 (Version 2)
Quarter: 2022Q1

REPORT INFORMATION
  Report Type: Report from Study
  Country: ES (occurrence: ES)
  Receive Date: 20220223
  Receipt Date: 20220307
  Transmission Date: 20220423
  Serious: Yes (Hospitalization)
  Sender: FDA-Public Use
  Company Number: ES-CELGENE-ESP-20200801528

PATIENT
  Age: 73 Year
  Sex: Male
  Weight: 81.8 kg

DRUGS (21)
  1. LENALIDOMIDE [Suspect]
     Active Substance: LENALIDOMIDE
     Indication: Plasma cell myeloma
     Dosage: 10 MILLIGRAM
     Route: 048
     Dates: start: 20181023, end: 20181023
  2. LENALIDOMIDE [Suspect]
     Active Substance: LENALIDOMIDE
     Dosage: 10 MILLIGRAM
     Route: 048
     Dates: start: 20181231, end: 20190106
  3. DEXAMETHASONE [Suspect]
     Active Substance: DEXAMETHASONE
     Indication: Plasma cell myeloma
     Dosage: 20 MILLIGRAM (DAYS 1,2,4,5,8,9,11,12,15,22,23,25,26,29,30,32 AND 33)
     Route: 048
     Dates: start: 20181023, end: 20181023
  4. DEXAMETHASONE [Suspect]
     Active Substance: DEXAMETHASONE
     Dosage: 20 MILLIGRAM?20 MILLIGRAM (DAYS 1,2,4,5,8,9,11,12,15,22,23,25,26,29,30,32 AND 33)
     Route: 048
     Dates: start: 20190104, end: 20190104
  5. BORTEZOMIB [Suspect]
     Active Substance: BORTEZOMIB
     Indication: Plasma cell myeloma
     Route: 058
     Dates: start: 20181023, end: 20181023
  6. BORTEZOMIB [Suspect]
     Active Substance: BORTEZOMIB
     Route: 058
     Dates: start: 20190103, end: 20190103
  7. OMEPRAZOLE [Concomitant]
     Active Substance: OMEPRAZOLE
     Indication: Product used for unknown indication
     Route: 065
  8. MAGNESIUM CREAM [Concomitant]
     Indication: Product used for unknown indication
     Route: 065
  9. ACETAMINOPHEN [Concomitant]
     Active Substance: ACETAMINOPHEN
     Indication: Product used for unknown indication
     Route: 065
     Dates: start: 201809
  10. METAMIZOL [Concomitant]
     Active Substance: METAMIZOLE SODIUM
     Indication: Product used for unknown indication
     Route: 065
     Dates: start: 201809, end: 20181016
  11. FENTANYL CITRATE [Concomitant]
     Active Substance: FENTANYL CITRATE
     Indication: Product used for unknown indication
     Dosage: 600 UG
     Route: 065
     Dates: start: 20181001
  12. DULOXETINE [Concomitant]
     Active Substance: DULOXETINE
     Indication: Product used for unknown indication
     Route: 065
     Dates: start: 20190131
  13. ASPIRIN [Concomitant]
     Active Substance: ASPIRIN
     Indication: Product used for unknown indication
     Dosage: 100
     Route: 065
     Dates: start: 20181023, end: 20210722
  14. ACYCLOVIR [Concomitant]
     Active Substance: ACYCLOVIR
     Indication: Product used for unknown indication
     Route: 065
     Dates: start: 20181023
  15. OXYCODONE [Concomitant]
     Active Substance: OXYCODONE
     Indication: Product used for unknown indication
     Route: 065
     Dates: start: 20181015
  16. GABAPENTIN [Concomitant]
     Active Substance: GABAPENTIN
     Indication: Product used for unknown indication
     Dosage: 800/8 MG
     Route: 065
     Dates: start: 20181015
  17. METASEDIN [Concomitant]
     Indication: Product used for unknown indication
     Route: 065
     Dates: start: 20181015, end: 20200323
  18. FUROSEMIDE [Concomitant]
     Active Substance: FUROSEMIDE
     Indication: Product used for unknown indication
     Route: 065
  19. UNSPECIFIED INGREDIENT [Concomitant]
     Active Substance: UNSPECIFIED INGREDIENT
     Indication: Product used for unknown indication
     Route: 065
     Dates: end: 20190802
  20. METHADONE HYDROCHLORIDE [Concomitant]
     Active Substance: METHADONE HYDROCHLORIDE
     Indication: Product used for unknown indication
     Route: 065
  21. MORPHINE HYDROCHLORIDE [Concomitant]
     Active Substance: MORPHINE HYDROCHLORIDE
     Indication: Product used for unknown indication
     Route: 065

REACTIONS (1)
  - Pathological fracture [Recovered/Resolved]

NARRATIVE: CASE EVENT DATE: 20190914
